FAERS Safety Report 16424812 (Version 1)
Quarter: 2019Q2

REPORT INFORMATION
  Report Type: Spontaneous
  Country: US (occurrence: US)
  Receive Date: 20190613
  Receipt Date: 20190613
  Transmission Date: 20190711
  Serious: Yes (Other)
  Sender: FDA-Public Use
  Company Number: US-SUN PHARMACEUTICAL INDUSTRIES LTD-2019R1-210586

PATIENT
  Age: 55 Year
  Sex: Male

DRUGS (1)
  1. METHOTREXATE. [Suspect]
     Active Substance: METHOTREXATE
     Indication: NON-HODGKIN^S LYMPHOMA
     Dosage: 6,000 MG FOURTH DOSE
     Route: 065

REACTIONS (5)
  - Toxicity to various agents [Unknown]
  - Blood creatinine increased [Unknown]
  - Condition aggravated [Unknown]
  - Oliguria [Unknown]
  - Fluid overload [Unknown]
